FAERS Safety Report 9563737 (Version 1)
Quarter: 2013Q3

REPORT INFORMATION
  Report Type: Spontaneous
  Country: GB (occurrence: None)
  Receive Date: 20130926
  Receipt Date: 20130926
  Transmission Date: 20140515
  Serious: Yes (Hospitalization)
  Sender: FDA-Public Use
  Company Number: GB-DEXPHARM-20130647

PATIENT
  Age: 68 Year
  Sex: Male

DRUGS (5)
  1. OMEPRAZOLE [Suspect]
  2. AMLODIPINE [Concomitant]
  3. GLICAZIDE [Concomitant]
  4. LISINOPRIL [Concomitant]
  5. METFORMIN [Concomitant]

REACTIONS (9)
  - Hypocalcaemia [None]
  - Hypomagnesaemia [None]
  - Muscular weakness [None]
  - Tremor [None]
  - Tetany [None]
  - Chvostek^s sign [None]
  - Wheezing [None]
  - Liver palpable subcostal [None]
  - Paraesthesia [None]
